FAERS Safety Report 4363595-2 (Version None)
Quarter: 2004Q2

REPORT INFORMATION
  Report Type: 
  Country: None (occurrence: None)
  Receive Date: 20040517
  Receipt Date: 20040224
  Transmission Date: 20050107
  Serious: No
  Sender: FDA-Public Use
  Company Number: S04-USA-01273-01

PATIENT
  Age: 81 Year
  Sex: Female

DRUGS (10)
  1. NAMENDA [Suspect]
     Indication: TRANSIENT ISCHAEMIC ATTACK
     Dosage: 10 MG QAM PO
     Route: 048
     Dates: start: 20040204, end: 20040201
  2. NAMENDA [Suspect]
     Indication: TRANSIENT ISCHAEMIC ATTACK
     Dosage: 5 MG QHS PO
     Route: 048
     Dates: start: 20040204, end: 20040201
  3. NAMENDA [Suspect]
     Indication: TRANSIENT ISCHAEMIC ATTACK
     Dosage: 10 MG BID PO
     Route: 048
     Dates: start: 20040201
  4. NAMENDA [Suspect]
     Indication: TRANSIENT ISCHAEMIC ATTACK
     Dosage: 5 MG QD PO
     Route: 048
     Dates: start: 20040121, end: 20040127
  5. NAMENDA [Suspect]
     Indication: TRANSIENT ISCHAEMIC ATTACK
     Dosage: 5 MG BID PO
     Route: 048
     Dates: start: 20040128, end: 20040203
  6. RISPERDAL [Concomitant]
  7. REMINYL [Concomitant]
  8. ZOLOFT [Concomitant]
  9. TAMOXIFEN CITRATE [Concomitant]
  10. WATER PILL [Concomitant]

REACTIONS (1)
  - HALLUCINATION, AUDITORY [None]
